FAERS Safety Report 5954999-2 (Version None)
Quarter: 2008Q4

REPORT INFORMATION
  Report Type: 
  Country: None (occurrence: None)
  Receive Date: 20081117
  Receipt Date: 20081110
  Transmission Date: 20090506
  Serious: Yes (Death, Other)
  Sender: FDA-Public Use
  Company Number: US-AVENTIS-200515897GDDC

PATIENT
  Age: 66 Year
  Sex: Female
  Weight: 90.7 kg

DRUGS (9)
  1. DOCETAXEL [Suspect]
     Route: 042
     Dates: start: 20040303, end: 20040505
  2. DOXORUBICIN HCL [Suspect]
     Route: 042
     Dates: start: 20031209, end: 20040210
  3. CYCLOPHOSPHAMIDE [Suspect]
     Route: 042
     Dates: start: 20031209, end: 20040210
  4. XANAX [Concomitant]
     Indication: ANXIETY
     Route: 058
  5. PAXIL [Concomitant]
     Indication: DEPRESSION
     Route: 048
  6. PROTONIX [Concomitant]
     Route: 048
     Dates: start: 20040401
  7. ALLEGRA [Concomitant]
     Route: 048
     Dates: start: 20040303
  8. ATENOLOL [Concomitant]
     Indication: HYPERTENSION
     Route: 048
     Dates: start: 20040331
  9. ASPIRIN [Concomitant]
     Indication: PROPHYLAXIS
     Route: 048

REACTIONS (1)
  - ACUTE MYELOID LEUKAEMIA [None]
